FAERS Safety Report 8534797-6 (Version None)
Quarter: 2012Q3

REPORT INFORMATION
  Report Type: 
  Country: None (occurrence: None)
  Receive Date: 20120724
  Receipt Date: 20120716
  Transmission Date: 20120928
  Serious: Yes (Hospitalization)
  Sender: FDA-Public Use
  Company Number: DE-BAXTER-2012BAX011486

PATIENT
  Sex: Female

DRUGS (29)
  1. RITUXIMAB [Suspect]
     Indication: B-CELL LYMPHOMA
     Route: 042
     Dates: start: 20120611
  2. VINCRISTINE [Suspect]
     Indication: B-CELL LYMPHOMA
     Route: 065
     Dates: start: 20120612
  3. ACETAMINOPHEN [Concomitant]
     Route: 048
     Dates: start: 20120611
  4. CYCLOPHOSPHAMIDE [Suspect]
     Indication: B-CELL LYMPHOMA
     Route: 042
     Dates: start: 20120612
  5. GRANISETRON HYDROCHLORIDE [Concomitant]
     Route: 065
     Dates: start: 20120613
  6. RANITIDINE [Concomitant]
     Route: 042
     Dates: start: 20120611
  7. POTASSIUM NOS [Concomitant]
     Route: 048
     Dates: start: 20120622, end: 20120626
  8. OLMESARTAN MEDOXOMIL [Concomitant]
     Route: 048
  9. DOXORUBICIN HYDROCHLORIDE [Suspect]
     Indication: B-CELL LYMPHOMA
     Route: 042
     Dates: start: 20120612
  10. ALLOPURINOL [Concomitant]
     Route: 048
     Dates: start: 20120612
  11. TRIMETHOPRIM [Concomitant]
     Route: 048
     Dates: start: 20120612
  12. BISOPROLOL FUMARATE AND HYDROCHLOROTHIAZIDE [Concomitant]
     Dosage: 5/12.5 MG/DAY (500 MG)
     Route: 048
     Dates: start: 20120617, end: 20120622
  13. DIPYRONE SODIUM SALT [Concomitant]
     Route: 048
  14. SULFAMETHIZOLE TAB [Concomitant]
     Route: 048
     Dates: start: 20120612
  15. SCOPOLAMINE BUTYLBROMIDE [Concomitant]
     Route: 054
     Dates: start: 20120629
  16. TORSEMIDE [Concomitant]
     Route: 048
     Dates: start: 20120629
  17. OPIPRAMOL HYDROCHLORIDE [Concomitant]
     Route: 048
  18. ALIZAPRIDE HYDROCHLORIDE [Concomitant]
     Dosage: 300 MG DAY 4-6
     Route: 048
     Dates: start: 20120613
  19. PREDNISOLONE [Suspect]
     Indication: B-CELL LYMPHOMA
     Dosage: DAY 0-4
     Route: 065
     Dates: start: 20120611
  20. CARBAMAZEPINE [Concomitant]
     Route: 048
  21. ALIZAPRIDE HYDROCHLORIDE [Concomitant]
  22. ACYCLOVIR [Concomitant]
     Route: 048
     Dates: start: 20120612
  23. LEVOFLOXACIN [Concomitant]
     Route: 065
     Dates: start: 20120617, end: 20120622
  24. DIAZEPAM [Concomitant]
     Route: 048
  25. PEGFILGRASTIM [Suspect]
     Indication: B-CELL LYMPHOMA
     Dosage: DAY 4
     Route: 058
     Dates: start: 20120615
  26. GRANISETRON HYDROCHLORIDE [Concomitant]
     Route: 065
     Dates: start: 20120612
  27. CLEMASTINE [Concomitant]
     Route: 042
     Dates: start: 20120611
  28. NITRENDIPINE [Concomitant]
     Route: 048
  29. SIMVASTATIN [Concomitant]
     Route: 048

REACTIONS (1)
  - PRESYNCOPE [None]
